FAERS Safety Report 4609341-6 (Version None)
Quarter: 2005Q1

REPORT INFORMATION
  Report Type: 
  Country: None (occurrence: None)
  Receive Date: 20050314
  Receipt Date: 20050301
  Transmission Date: 20050727
  Serious: Yes (Other)
  Sender: FDA-Public Use
  Company Number: 2003126126

PATIENT
  Age: 33 Year
  Sex: Female

DRUGS (3)
  1. VFEND [Suspect]
     Indication: PROPHYLAXIS
  2. IMMUNOSUPPRESSIVE AGENTS (IMMUNOSUPPRESSIVE AGENTS) [Concomitant]
  3. CORTICOSTEROIDS (CORTICOSTEROIDS) [Concomitant]

REACTIONS (3)
  - COUGH [None]
  - FUNGUS SPUTUM TEST POSITIVE [None]
  - ZYGOMYCOSIS [None]
